FAERS Safety Report 16554982 (Version 1)
Quarter: 2019Q3

REPORT INFORMATION
  Report Type: Spontaneous
  Country: US (occurrence: US)
  Receive Date: 20190710
  Receipt Date: 20190710
  Transmission Date: 20191004
  Serious: No
  Sender: FDA-Public Use
  Company Number: US-IMPAX LABORATORIES, LLC-2018-IPXL-02216

PATIENT
  Sex: Male
  Weight: 118 kg

DRUGS (3)
  1. CARBIDOPA-LEVODOPA ER [Suspect]
     Active Substance: CARBIDOPA\LEVODOPA
     Indication: PARKINSON^S DISEASE
     Dosage: 25/100 MG, 1 PILL, THREE TIMES DAILY
     Route: 048
  2. CARBIDOPA-LEVODOPA ER [Suspect]
     Active Substance: CARBIDOPA\LEVODOPA
     Dosage: 25/100 MG, 1 PILL ONCE A DAY AND 2 PILLS, TWICE DAILY
     Route: 048
  3. CARBIDOPA-LEVODOPA ER [Suspect]
     Active Substance: CARBIDOPA\LEVODOPA
     Dosage: 25/100 MG, 2 PILLS, THREE TIMES A DAY
     Route: 048

REACTIONS (1)
  - Drug ineffective [Unknown]
